FAERS Safety Report 5808854-9 (Version None)
Quarter: 2008Q3

REPORT INFORMATION
  Report Type: 
  Country: None (occurrence: None)
  Receive Date: 20080714
  Receipt Date: 20080314
  Transmission Date: 20090109
  Serious: Yes (Hospitalization)
  Sender: FDA-Public Use
  Company Number: JP-ASTRAZENECA-2008AP05330

PATIENT
  Age: 27016 Day
  Sex: Female

DRUGS (18)
  1. SEROQUEL [Suspect]
     Indication: DEMENTIA WITH LEWY BODIES
     Route: 048
     Dates: start: 20080306, end: 20080310
  2. DONEPEZIL CODE NOT BROKEN [Suspect]
     Indication: DEMENTIA WITH LEWY BODIES
     Route: 048
     Dates: start: 20080213, end: 20080227
  3. DONEPEZIL CODE NOT BROKEN [Suspect]
     Route: 048
     Dates: start: 20080228, end: 20080305
  4. ARICEPT [Suspect]
     Indication: DEMENTIA WITH LEWY BODIES
     Route: 048
     Dates: start: 20080307, end: 20080310
  5. YOKU-KAN-SAN-KA-CHIMP-I-HANGE [Concomitant]
     Indication: DEMENTIA
     Route: 048
     Dates: start: 20080311
  6. AMOBAN [Concomitant]
     Route: 048
     Dates: start: 20080311
  7. RESLIN [Concomitant]
     Route: 048
     Dates: start: 20080311
  8. AMARYL [Concomitant]
     Route: 048
     Dates: start: 20040415
  9. LIVALO [Concomitant]
     Route: 048
     Dates: start: 20060502
  10. MERCAZOLE [Concomitant]
     Route: 048
     Dates: start: 20040415
  11. FUROSEMIDE [Concomitant]
     Route: 048
     Dates: start: 20060502
  12. SPIRONOLACTONE [Concomitant]
     Route: 048
     Dates: start: 20071204
  13. RIVOTRIL [Concomitant]
     Route: 048
     Dates: start: 20041229
  14. OPALMON [Concomitant]
     Route: 048
     Dates: start: 20050708
  15. KELNAC [Concomitant]
     Route: 048
     Dates: start: 20040415
  16. KINEDAK [Concomitant]
     Route: 048
     Dates: start: 20040415
  17. L-ASPARTATE POTASSIUM [Concomitant]
     Route: 048
     Dates: start: 20070705
  18. PARIET [Concomitant]
     Route: 048
     Dates: start: 20061006

REACTIONS (1)
  - DIABETIC NEUROPATHY [None]
